FAERS Safety Report 18775666 (Version 5)
Quarter: 2021Q3

REPORT INFORMATION
  Report Type: Report from Study
  Country: KR (occurrence: KR)
  Receive Date: 20210122
  Receipt Date: 20210805
  Transmission Date: 20211014
  Serious: Yes (Hospitalization)
  Sender: FDA-Public Use
  Company Number: KR-EXELIXIS-XL18421036851

PATIENT
  Age: 65 Year
  Sex: Male

DRUGS (8)
  1. CABOZANTINIB [Suspect]
     Active Substance: CABOZANTINIB
     Indication: CLEAR CELL RENAL CELL CARCINOMA
     Dosage: 60 MG, QD
     Route: 048
     Dates: start: 20200617, end: 20201213
  2. FLUDROCORTISONE [Concomitant]
     Active Substance: FLUDROCORTISONE
     Indication: ADRENAL INSUFFICIENCY
     Dosage: 50 MCG TWICE PER DAY (ONGOING)
     Route: 048
     Dates: start: 20170614
  3. PREDNISOLONE. [Concomitant]
     Active Substance: PREDNISOLONE
     Indication: ADRENAL INSUFFICIENCY
     Dosage: 2.5 MG PER DAY
     Route: 048
     Dates: start: 20170614, end: 20200808
  4. ASPIRIN. [Concomitant]
     Active Substance: ASPIRIN
     Indication: HYPERTENSION
     Dosage: 100 MG PER DAY (ONGOING)
     Route: 048
     Dates: start: 2000
  5. FAMOTIDINE. [Concomitant]
     Active Substance: FAMOTIDINE
     Indication: GASTRITIS PROPHYLAXIS
     Dosage: 20 MG TWICE PER DAY (ONGOING)
     Route: 048
     Dates: start: 2012
  6. PREDNISOLONE. [Concomitant]
     Active Substance: PREDNISOLONE
     Dosage: 5 MG PER DAY (ONGOING)
     Route: 048
     Dates: start: 20200909
  7. NIFEDIPINE. [Concomitant]
     Active Substance: NIFEDIPINE
     Indication: HYPERTENSION
     Dosage: 40 MG PER DAY (ONGOING)
     Route: 048
     Dates: start: 2000
  8. RENALMIN [Concomitant]
     Indication: CHRONIC KIDNEY DISEASE
     Dosage: ONE TABLET PER DAY (ONGOING)
     Route: 048
     Dates: start: 2012

REACTIONS (1)
  - Peritonitis [Recovered/Resolved]

NARRATIVE: CASE EVENT DATE: 20201201
